FAERS Safety Report 9734131 (Version 2)
Quarter: 2013Q4

REPORT INFORMATION
  Report Type: Report from Study
  Country: FR (occurrence: FR)
  Receive Date: 20131205
  Receipt Date: 20131205
  Transmission Date: 20140711
  Serious: Yes (Other)
  Sender: FDA-Public Use
  Company Number: FR-B.I. PHARMACEUTICALS,INC./RIDGEFIELD-2012-FF-00883FF

PATIENT
  Age: 62 Year
  Sex: Male
  Weight: 63 kg

DRUGS (9)
  1. BIBW 2992 [Suspect]
     Indication: SQUAMOUS CELL CARCINOMA OF HEAD AND NECK
     Dosage: 50 MG
     Route: 048
     Dates: start: 20120314, end: 20120703
  2. ACTISKENAN [Concomitant]
     Indication: LARYNGEAL PAIN
     Route: 048
     Dates: start: 20120202
  3. LEVOTHYROX [Concomitant]
     Indication: THYROID NODULE REMOVAL
     Route: 048
     Dates: start: 2009
  4. TRANXENE [Concomitant]
     Indication: ANXIETY
     Dosage: 10 MG
     Route: 048
     Dates: start: 2012
  5. PRAVADUAL [Concomitant]
     Indication: ARTERIAL DISORDER
     Route: 048
     Dates: start: 2009
  6. IMOVANE [Concomitant]
     Indication: INSOMNIA
     Route: 048
     Dates: start: 2012
  7. AERIUS [Concomitant]
     Indication: RASH
     Dosage: 5 MG
     Route: 048
     Dates: start: 20120620
  8. DEXERYL CREAM [Concomitant]
     Indication: RASH
     Route: 061
     Dates: start: 20120620
  9. DOXY [Concomitant]
     Indication: RASH
     Dosage: 100 MG
     Route: 061
     Dates: start: 20120620

REACTIONS (1)
  - Tracheo-oesophageal fistula [Not Recovered/Not Resolved]
